FAERS Safety Report 5370576-9 (Version None)
Quarter: 2007Q2

REPORT INFORMATION
  Report Type: 
  Country: None (occurrence: None)
  Receive Date: 20070626
  Receipt Date: 20070614
  Transmission Date: 20071010
  Serious: Yes (Hospitalization, Other)
  Sender: FDA-Public Use
  Company Number: US-ELI_LILLY_AND_COMPANY-US200706005088

PATIENT
  Age: 77 Year
  Sex: Female

DRUGS (2)
  1. EVISTA [Suspect]
     Indication: OSTEOPOROSIS
     Dosage: 60 MG, UNK
     Route: 048
     Dates: start: 19990101, end: 20070612
  2. OMEGA-3 TRIGLYCERIDES [Concomitant]

REACTIONS (9)
  - ARRHYTHMIA [None]
  - ATRIOVENTRICULAR BLOCK COMPLETE [None]
  - DIABETES MELLITUS NON-INSULIN-DEPENDENT [None]
  - HEART RATE DECREASED [None]
  - HYPERTENSION [None]
  - INSOMNIA [None]
  - TOOTH ABSCESS [None]
  - TOOTH DISORDER [None]
  - TOOTHACHE [None]
